FAERS Safety Report 15220981 (Version 1)
Quarter: 2018Q3

REPORT INFORMATION
  Report Type: Spontaneous
  Country: GB (occurrence: GB)
  Receive Date: 20180731
  Receipt Date: 20180731
  Transmission Date: 20181010
  Serious: Yes (Death, Hospitalization)
  Sender: FDA-Public Use
  Company Number: GB-PFIZER INC-2018306921

PATIENT
  Age: 23 Year
  Sex: Female

DRUGS (1)
  1. LYRICA [Suspect]
     Active Substance: PREGABALIN
     Dosage: UNK

REACTIONS (5)
  - Overdose [Fatal]
  - Multiple organ dysfunction syndrome [Fatal]
  - Seizure [Unknown]
  - Acute hepatic failure [Fatal]
  - Pain [Unknown]

NARRATIVE: CASE EVENT DATE: 20180719
